FAERS Safety Report 11334705 (Version 2)
Quarter: 2015Q3

REPORT INFORMATION
  Report Type: Spontaneous
  Country: US (occurrence: None)
  Receive Date: 20150731
  Receipt Date: 20150810
  Transmission Date: 20151125
  Serious: Yes (Death, Other)
  Sender: FDA-Public Use
  Company Number: ADR-2014-01589

PATIENT
  Age: 24 Year
  Sex: Male

DRUGS (1)
  1. BACLOFEN INTRATHECAL [Suspect]
     Active Substance: BACLOFEN
     Indication: MUSCLE SPASTICITY

REACTIONS (8)
  - Pain [None]
  - Muscle spasticity [None]
  - Joint range of motion decreased [None]
  - Cardiac arrest [None]
  - Drug dose omission [None]
  - Muscle tightness [None]
  - No therapeutic response [None]
  - Musculoskeletal stiffness [None]

NARRATIVE: CASE EVENT DATE: 20140825
